FAERS Safety Report 8178045-8 (Version None)
Quarter: 2012Q1

REPORT INFORMATION
  Report Type: 
  Country: None (occurrence: None)
  Receive Date: 20120126
  Receipt Date: 20111014
  Transmission Date: 20120608
  Serious: No
  Sender: FDA-Public Use
  Company Number: PHEH2011US07504

PATIENT
  Age: 83 Year
  Sex: Male
  Weight: 106.6 kg

DRUGS (1)
  1. AFINITOR [Suspect]
     Indication: MALIGNANT NEOPLASM OF ISLETS OF LANGERHANS
     Dosage: 10 MG, DAILY, ORAL
     Route: 048
     Dates: start: 20111004

REACTIONS (3)
  - DIARRHOEA [None]
  - ABDOMINAL TENDERNESS [None]
  - CHROMATURIA [None]
